FAERS Safety Report 19186850 (Version 2)
Quarter: 2022Q1

REPORT INFORMATION
  Report Type: Report from Study
  Country: CA (occurrence: CA)
  Receive Date: 20210427
  Receipt Date: 20220223
  Transmission Date: 20220423
  Serious: Yes (Other)
  Sender: FDA-Public Use
  Company Number: CA-UCBSA-2021018943

PATIENT
  Sex: Male

DRUGS (3)
  1. BRIVARACETAM [Suspect]
     Active Substance: BRIVARACETAM
     Indication: Tonic convulsion
     Dosage: 100 MILLIGRAM, 2X/DAY (BID)
     Dates: start: 20190101
  2. BRIVARACETAM [Suspect]
     Active Substance: BRIVARACETAM
     Indication: Epilepsy
     Dosage: 125MG AM AND 100MG HS
  3. BRIVARACETAM [Suspect]
     Active Substance: BRIVARACETAM
     Indication: Seizure

REACTIONS (5)
  - Partial seizures [Unknown]
  - Tonic convulsion [Unknown]
  - Dysplasia [Unknown]
  - Overdose [Unknown]
  - Product use issue [Unknown]

NARRATIVE: CASE EVENT DATE: 20190101
